FAERS Safety Report 9275498 (Version 1)
Quarter: 2013Q1

REPORT INFORMATION
  Report Type: Spontaneous
  Country: FR (occurrence: None)
  Receive Date: 20121109
  Receipt Date: 20121109
  Transmission Date: 20140127
  Serious: Yes (Hospitalization)
  Sender: FDA-Public Use
  Company Number: 2012S1000595

PATIENT
  Age: 57 Year
  Sex: Male
  Weight: 85 kg

DRUGS (7)
  1. CUBICIN (DAPTOMYCIN) [Suspect]
     Indication: STAPHYLOCOCCAL INFECTION
     Dates: start: 20120614, end: 20120711
  2. DOXYCYCLINE HYCLATE [Concomitant]
  3. CANDESARTAN CILEXETIL [Concomitant]
  4. FLUINDIONE [Concomitant]
  5. NEXIUM [Concomitant]
  6. ESCITALOPRAM [Concomitant]
  7. SKENAN [Concomitant]

REACTIONS (2)
  - Organising pneumonia [None]
  - Gamma-glutamyltransferase increased [None]
